FAERS Safety Report 4264880-5 (Version None)
Quarter: 2004Q1

REPORT INFORMATION
  Report Type: 
  Country: None (occurrence: None)
  Receive Date: 20040105
  Receipt Date: 20031222
  Transmission Date: 20041129
  Serious: Yes (Hospitalization)
  Sender: FDA-Public Use
  Company Number: 03P-056-0234078-00

PATIENT
  Age: 35 Year
  Sex: Male

DRUGS (2)
  1. ISOPTIN SR [Suspect]
     Indication: CLUSTER HEADACHE
     Dosage: 240 MG, 3 IN 1 D, PER ORAL
     Route: 048
     Dates: end: 20030503
  2. SUMATRIPTAN SUCCINATE [Suspect]
     Indication: CLUSTER HEADACHE
     Dosage: 6 MG, 2 IN 1 D, SUBCUTANEOUS
     Route: 058
     Dates: start: 20030503, end: 20030503

REACTIONS (3)
  - CEREBROVASCULAR ACCIDENT [None]
  - FACIAL PALSY [None]
  - HEMIPLEGIA [None]
